FAERS Safety Report 13819438 (Version 2)
Quarter: 2017Q3

REPORT INFORMATION
  Report Type: Spontaneous
  Country: US (occurrence: US)
  Receive Date: 20170801
  Receipt Date: 20170811
  Transmission Date: 20171127
  Serious: Yes (Hospitalization)
  Sender: FDA-Public Use
  Company Number: US-BAYER-2017-146225

PATIENT

DRUGS (1)
  1. ALEVE [Suspect]
     Active Substance: NAPROXEN SODIUM

REACTIONS (2)
  - Adverse drug reaction [None]
  - Contraindicated product administered [None]
